FAERS Safety Report 7240814-6 (Version None)
Quarter: 2011Q1

REPORT INFORMATION
  Report Type: 
  Country: None (occurrence: None)
  Receive Date: 20110120
  Receipt Date: 20110120
  Transmission Date: 20110831
  Serious: Yes (Hospitalization, Disabling, Other)
  Sender: FDA-Public Use
  Company Number: None

PATIENT
  Age: 55 Year
  Sex: Male
  Weight: 114.3065 kg

DRUGS (2)
  1. ABILIFY [Suspect]
     Indication: SCHIZOAFFECTIVE DISORDER
     Dosage: 15MG. B.I.D. ORAL
     Route: 048
     Dates: start: 20080101
  2. ABILIFY [Suspect]
     Indication: SCHIZOAFFECTIVE DISORDER
     Dosage: 15MG. B.I.D. ORAL
     Route: 048
     Dates: start: 20101201

REACTIONS (2)
  - DIABETES MELLITUS [None]
  - MALAISE [None]
